FAERS Safety Report 10384754 (Version 3)
Quarter: 2014Q4

REPORT INFORMATION
  Report Type: Report from Study
  Country: CA (occurrence: CA)
  Receive Date: 20140814
  Receipt Date: 20141121
  Transmission Date: 20150528
  Serious: No
  Sender: FDA-Public Use
  Company Number: CA-ABBVIE-14K-028-1271112-00

PATIENT
  Sex: Female
  Weight: 31.78 kg

DRUGS (4)
  1. HUMIRA [Suspect]
     Active Substance: ADALIMUMAB
     Indication: JUVENILE IDIOPATHIC ARTHRITIS
     Route: 058
     Dates: start: 20140214
  2. ARISTOSPAN [Suspect]
     Active Substance: TRIAMCINOLONE HEXACETONIDE
     Indication: INFLAMMATION
     Dosage: X3 JOINTS
     Route: 065
     Dates: start: 20140730, end: 20140730
  3. METHOTREXATE [Concomitant]
     Active Substance: METHOTREXATE
     Indication: JUVENILE IDIOPATHIC ARTHRITIS
     Route: 048
     Dates: start: 2010
  4. ARISTOSPAN [Suspect]
     Active Substance: TRIAMCINOLONE HEXACETONIDE
     Indication: JUVENILE IDIOPATHIC ARTHRITIS

REACTIONS (4)
  - Swelling [Recovering/Resolving]
  - Pain [Recovering/Resolving]
  - Anxiety [Unknown]
  - Inflammation [Recovering/Resolving]

NARRATIVE: CASE EVENT DATE: 2014
